FAERS Safety Report 5296251-7 (Version None)
Quarter: 2007Q2

REPORT INFORMATION
  Report Type: 
  Country: None (occurrence: None)
  Receive Date: 20070413
  Receipt Date: 20070402
  Transmission Date: 20071010
  Serious: Yes (Other)
  Sender: FDA-Public Use
  Company Number: 2007AC00579

PATIENT
  Age: 12 Year
  Sex: Male
  Weight: 45.4 kg

DRUGS (15)
  1. PROPOFOL [Suspect]
     Indication: SEDATION
     Route: 042
  2. PROPOFOL [Suspect]
     Dosage: TOTAL AMOUNT ADMINISTERED 220 MG
     Route: 042
  3. ALBUTEROL/ATROVENT [Concomitant]
     Dosage: 2.5 MG/0.5 MG
     Route: 045
  4. FLUTICASONE/SALMETEROL [Concomitant]
     Dosage: 100 UG/50 UG. METERED DOSE INHALER.
  5. MONTELUKAST SODIUM [Concomitant]
     Route: 048
  6. CETIRIZINE HCL [Concomitant]
     Route: 048
  7. TRIAMCINOLONE [Concomitant]
     Route: 045
  8. LANSOPRAZOLE [Concomitant]
     Route: 048
  9. RANITIDINE [Concomitant]
     Route: 048
  10. LIDOCAINE [Concomitant]
     Indication: SEDATION
     Route: 058
  11. LIDOCAINE [Concomitant]
     Route: 042
  12. RINGER'S [Concomitant]
     Dosage: BOLUS
     Route: 042
  13. RINGER'S [Concomitant]
     Route: 042
  14. FENTANYL [Concomitant]
     Route: 042
  15. FENTANYL [Concomitant]
     Dosage: 5 MINS AFTER START OF PROCEDURE.
     Route: 042

REACTIONS (1)
  - RETROGRADE AMNESIA [None]
